FAERS Safety Report 8204134-5 (Version None)
Quarter: 2012Q1

REPORT INFORMATION
  Report Type: 
  Country: None (occurrence: None)
  Receive Date: 20120313
  Receipt Date: 20120305
  Transmission Date: 20120608
  Serious: No
  Sender: FDA-Public Use
  Company Number: US-BAYER-2012-021754

PATIENT
  Age: 83 Year
  Sex: Male

DRUGS (1)
  1. STAXYN [Suspect]
     Indication: ERECTILE DYSFUNCTION
     Dosage: 10 MG, UNK

REACTIONS (2)
  - ERECTILE DYSFUNCTION [None]
  - BURNING SENSATION [None]
